APPROVED DRUG PRODUCT: PARLODEL
Active Ingredient: BROMOCRIPTINE MESYLATE
Strength: EQ 2.5MG BASE
Dosage Form/Route: TABLET;ORAL
Application: N017962 | Product #001 | TE Code: AB
Applicant: ESJAY PHARMA LLC
Approved: Approved Prior to Jan 1, 1982 | RLD: Yes | RS: No | Type: RX